FAERS Safety Report 24941527 (Version 1)
Quarter: 2025Q1

REPORT INFORMATION
  Report Type: Spontaneous
  Country: JP (occurrence: JP)
  Receive Date: 20250207
  Receipt Date: 20250207
  Transmission Date: 20250408
  Serious: Yes (Hospitalization, Other)
  Sender: BAYER HEALTHCARE PHARMACEUTICALS INC.
  Company Number: JP-BAYER-2024A173114

PATIENT
  Age: 8 Decade
  Sex: Male

DRUGS (4)
  1. KERENDIA [Suspect]
     Active Substance: FINERENONE
     Indication: Type 2 diabetes mellitus
     Dosage: DAILY DOSE 10 MG
     Dates: start: 20230707, end: 20230901
  2. KERENDIA [Suspect]
     Active Substance: FINERENONE
     Indication: Chronic kidney disease
  3. OLMESARTAN [Concomitant]
     Active Substance: OLMESARTAN
  4. JARDIANCE [Concomitant]
     Active Substance: EMPAGLIFLOZIN

REACTIONS (6)
  - Renal impairment [Recovered/Resolved]
  - Prerenal failure [None]
  - Hyperkalaemia [Recovered/Resolved]
  - Dizziness [None]
  - Decreased appetite [None]
  - Dehydration [None]

NARRATIVE: CASE EVENT DATE: 20230801
